FAERS Safety Report 9803372 (Version 2)
Quarter: 2014Q1

REPORT INFORMATION
  Report Type: Spontaneous
  Country: NL (occurrence: None)
  Receive Date: 20140103
  Receipt Date: 20140211
  Transmission Date: 20141002
  Serious: Yes (Other)
  Sender: FDA-Public Use
  Company Number: 2013-NL-004949

PATIENT
  Age: 33 Year
  Sex: Male
  Weight: 136 kg

DRUGS (5)
  1. XYREM [Suspect]
     Indication: NARCOLEPSY
     Route: 048
     Dates: start: 2009
  2. XYREM [Suspect]
     Indication: CATAPLEXY
     Route: 048
     Dates: start: 2009
  3. METHYLPHENIDATE (METHYLPHENIDATE HYDROCHLORIDE) [Concomitant]
  4. PANTOPRAZOLE (PANTOPRAZOLE SODIUM SESQUIHYDRATE) [Concomitant]
  5. VITAMIN D3 (COLECALCIFEROL) [Concomitant]

REACTIONS (5)
  - Muscular weakness [None]
  - Peripheral coldness [None]
  - Overdose [None]
  - Drug effect incomplete [None]
  - Pain in extremity [None]
